FAERS Safety Report 7283642-8 (Version None)
Quarter: 2011Q1

REPORT INFORMATION
  Report Type: 
  Country: None (occurrence: None)
  Receive Date: 20110209
  Receipt Date: 20110131
  Transmission Date: 20110831
  Serious: No
  Sender: FDA-Public Use
  Company Number: CA-ELI_LILLY_AND_COMPANY-CA201102000279

PATIENT
  Age: 49 Year
  Sex: Female

DRUGS (3)
  1. CYMBALTA [Suspect]
     Dosage: 60 MG, UNKNOWN
     Route: 048
  2. CYMBALTA [Suspect]
     Indication: DEPRESSION
     Dosage: 90 MG, DAILY (1/D)
     Route: 048
  3. CYMBALTA [Suspect]
     Dosage: 30 MG, UNKNOWN
     Route: 048
     Dates: end: 20100705

REACTIONS (13)
  - TREMOR [None]
  - BACK PAIN [None]
  - INSOMNIA [None]
  - ABDOMINAL PAIN UPPER [None]
  - GASTRITIS [None]
  - PALPITATIONS [None]
  - DRUG WITHDRAWAL SYNDROME [None]
  - PANCREATIC DISORDER [None]
  - PARAESTHESIA [None]
  - VOMITING [None]
  - LIVER DISORDER [None]
  - FATIGUE [None]
  - VISION BLURRED [None]
